FAERS Safety Report 24580956 (Version 1)
Quarter: 2024Q4

REPORT INFORMATION
  Report Type: Spontaneous
  Country: US (occurrence: None)
  Receive Date: 20241105
  Receipt Date: 20241105
  Transmission Date: 20250115
  Serious: Yes (Other)
  Sender: Public
  Company Number: None

PATIENT
  Age: 22 Year
  Sex: Female
  Weight: 72.6 kg

DRUGS (1)
  1. HUMIRA [Suspect]
     Active Substance: ADALIMUMAB
     Indication: Undifferentiated spondyloarthritis
     Dosage: OTHER FREQUENCY : EVERY 2 WEEKS;?
     Route: 058

REACTIONS (6)
  - Urticaria [None]
  - Contusion [None]
  - Haemorrhage [None]
  - Injection site pain [None]
  - Injection site pain [None]
  - Product substitution issue [None]

NARRATIVE: CASE EVENT DATE: 20240701
